FAERS Safety Report 5102169-2 (Version None)
Quarter: 2006Q3

REPORT INFORMATION
  Report Type: 
  Country: None (occurrence: None)
  Receive Date: 20060912
  Receipt Date: 20060501
  Transmission Date: 20061208
  Serious: Yes (Death)
  Sender: FDA-Public Use
  Company Number: US-ABBOTT-06P-163-0332102-09

PATIENT
  Sex: Male

DRUGS (18)
  1. RITONAVIR SOFT GELATIN CAPSULES [Suspect]
     Indication: HIV INFECTION
     Route: 048
     Dates: end: 20060324
  2. RITONAVIR SOFT GELATIN CAPSULES [Suspect]
     Indication: DRUG RESISTANCE
     Route: 048
     Dates: start: 20050918
  3. APTIVUS [Suspect]
     Indication: HIV INFECTION
     Route: 048
     Dates: end: 20060324
  4. APTIVUS [Suspect]
     Route: 048
     Dates: start: 20050918
  5. VALPROATE SODIUM [Concomitant]
     Indication: CONVULSION
     Route: 048
     Dates: start: 20050328, end: 20060324
  6. VALPROATE SODIUM [Concomitant]
     Dosage: 500MG IN AM, 750MG IN PM
     Dates: end: 20030101
  7. TOPIRAMATE [Concomitant]
     Indication: CONVULSION
     Dosage: 25MG IN AM; 50MG IN PM
     Route: 048
     Dates: start: 20051207, end: 20060324
  8. FENTANYL [Concomitant]
     Indication: DRUG USE FOR UNKNOWN INDICATION
     Dosage: 50MG PATCH
     Route: 061
     Dates: start: 20060321
  9. VALCYTE [Concomitant]
     Indication: DRUG USE FOR UNKNOWN INDICATION
     Route: 048
     Dates: start: 20060221
  10. ZOLPIDEM TARTRATE [Concomitant]
     Indication: DRUG USE FOR UNKNOWN INDICATION
     Route: 048
     Dates: start: 20060221
  11. FAMOTIDINE [Concomitant]
     Indication: DRUG USE FOR UNKNOWN INDICATION
     Dates: start: 20051205
  12. BACTRIM [Concomitant]
     Indication: DRUG USE FOR UNKNOWN INDICATION
     Dates: start: 20030101
  13. RISPERIDONE [Concomitant]
     Indication: DRUG USE FOR UNKNOWN INDICATION
     Dates: start: 20050601
  14. ACYCLOVIR [Concomitant]
     Indication: DRUG USE FOR UNKNOWN INDICATION
     Dates: start: 20050601
  15. DRONABINOL [Concomitant]
     Indication: DRUG USE FOR UNKNOWN INDICATION
     Dates: start: 20050622
  16. LEXAPRO [Concomitant]
     Indication: DRUG USE FOR UNKNOWN INDICATION
     Dates: start: 20050525
  17. LEVIXA [Concomitant]
     Indication: DRUG USE FOR UNKNOWN INDICATION
  18. TRAVUDA [Concomitant]
     Indication: DRUG USE FOR UNKNOWN INDICATION
     Dates: start: 20040817

REACTIONS (4)
  - CONVULSION [None]
  - CYTOMEGALOVIRUS INFECTION [None]
  - CYTOMEGALOVIRUS OESOPHAGITIS [None]
  - HIV INFECTION [None]
